FAERS Safety Report 7907006-6 (Version None)
Quarter: 2011Q4

REPORT INFORMATION
  Report Type: 
  Country: None (occurrence: None)
  Receive Date: 20111110
  Receipt Date: 20111104
  Transmission Date: 20120403
  Serious: Yes (Hospitalization)
  Sender: FDA-Public Use
  Company Number: FR-MERCK-1111FRA00021

PATIENT
  Age: 63 Year
  Sex: Female
  Weight: 88 kg

DRUGS (1)
  1. PRIMAXIN [Suspect]
     Indication: OSTEITIS
     Route: 042
     Dates: start: 20110922, end: 20111010

REACTIONS (3)
  - PHOTOSENSITIVITY REACTION [None]
  - PANCYTOPENIA [None]
  - PYREXIA [None]
